FAERS Safety Report 8374152-5 (Version None)
Quarter: 2012Q2

REPORT INFORMATION
  Report Type: 
  Country: None (occurrence: None)
  Receive Date: 20120521
  Receipt Date: 20120516
  Transmission Date: 20120825
  Serious: Yes (Other)
  Sender: FDA-Public Use
  Company Number: US-GLAXOSMITHKLINE-A0977875A

PATIENT
  Sex: Female

DRUGS (5)
  1. BISOPROLOL FUMARATE [Concomitant]
  2. COUMADIN [Concomitant]
  3. ADVAIR DISKUS 100/50 [Suspect]
     Indication: CHRONIC OBSTRUCTIVE PULMONARY DISEASE
     Dosage: 1PUFF PER DAY
     Route: 055
     Dates: start: 20120201
  4. LEVOTHYROXINE SODIUM [Concomitant]
  5. PROPAFENONE HCL [Concomitant]

REACTIONS (6)
  - HYPERTENSIVE CRISIS [None]
  - CEREBROVASCULAR ACCIDENT [None]
  - NAUSEA [None]
  - FATIGUE [None]
  - HEART RATE INCREASED [None]
  - DIZZINESS [None]
